FAERS Safety Report 5306352-2 (Version None)
Quarter: 2007Q2

REPORT INFORMATION
  Report Type: 
  Country: None (occurrence: None)
  Receive Date: 20070424
  Receipt Date: 20070412
  Transmission Date: 20071010
  Serious: Yes (Other)
  Sender: FDA-Public Use
  Company Number: PHBS2007US06899

PATIENT
  Sex: Male
  Weight: 2.9 kg

DRUGS (8)
  1. OXYTOCIN [Suspect]
  2. METHERGINE [Suspect]
  3. RISPERDAL [Suspect]
  4. PENTAZOCINE LACTATE [Suspect]
  5. DIAZEPAM [Suspect]
  6. PIPAMPERONE [Suspect]
  7. TRIHEXYPHENIDYL HCL [Suspect]
  8. PROMETHAZINE [Suspect]

REACTIONS (2)
  - DRUG EXPOSURE DURING PREGNANCY [None]
  - NEONATAL TACHYPNOEA [None]
